FAERS Safety Report 15114049 (Version 1)
Quarter: 2018Q2

REPORT INFORMATION
  Report Type: Spontaneous
  Country: US (occurrence: US)
  Receive Date: 20180612
  Receipt Date: 20180612
  Transmission Date: 20180711
  Serious: Yes (Hospitalization)
  Sender: FDA-Public Use
  Company Number: None

PATIENT
  Age: 75 Year
  Sex: Male
  Weight: 85.3 kg

DRUGS (19)
  1. ECOTRIN [Suspect]
     Active Substance: ASPIRIN
     Indication: CORONARY ARTERY DISEASE
     Dosage: CHRONIC
     Route: 048
  2. APAP [Concomitant]
     Active Substance: ACETAMINOPHEN
  3. BENADRYL [Concomitant]
     Active Substance: DIPHENHYDRAMINE HYDROCHLORIDE
  4. METFORMIN [Concomitant]
     Active Substance: METFORMIN HYDROCHLORIDE
  5. ACCUPRIL [Concomitant]
     Active Substance: QUINAPRIL HYDROCHLORIDE
  6. TETRAHYDROZOLINE [Concomitant]
     Active Substance: TETRAHYDROZOLINE
  7. TRULICITY [Concomitant]
     Active Substance: DULAGLUTIDE
  8. FUROSEMIDE. [Concomitant]
     Active Substance: FUROSEMIDE
  9. TOPROL XL [Concomitant]
     Active Substance: METOPROLOL SUCCINATE
  10. THERAGRAN [Concomitant]
     Active Substance: VITAMINS
  11. SILVADENE [Concomitant]
     Active Substance: SILVER SULFADIAZINE
  12. WARFARIN [Suspect]
     Active Substance: WARFARIN
     Indication: ATRIAL FIBRILLATION
     Dosage: CHRONIC
     Route: 048
  13. MEVACOR [Concomitant]
     Active Substance: LOVASTATIN
  14. K-DUR [Concomitant]
     Active Substance: POTASSIUM CHLORIDE
  15. FLOMAX [Concomitant]
     Active Substance: TAMSULOSIN HYDROCHLORIDE
  16. ASTELIN [Concomitant]
     Active Substance: AZELASTINE HYDROCHLORIDE
  17. NTG [Concomitant]
     Active Substance: NITROGLYCERIN
  18. KENALOG [Concomitant]
     Active Substance: TRIAMCINOLONE ACETONIDE
  19. VITAMIN D2 [Concomitant]
     Active Substance: ERGOCALCIFEROL

REACTIONS (4)
  - Pneumonia [None]
  - Coagulopathy [None]
  - Subdural haematoma [None]
  - Atrial fibrillation [None]

NARRATIVE: CASE EVENT DATE: 20180321
